FAERS Safety Report 4673579-2 (Version None)
Quarter: 2005Q2

REPORT INFORMATION
  Report Type: 
  Country: None (occurrence: None)
  Receive Date: 20050523
  Receipt Date: 20050509
  Transmission Date: 20051028
  Serious: Yes (Other)
  Sender: FDA-Public Use
  Company Number: 2005072819

PATIENT
  Age: 77 Year
  Sex: Male
  Weight: 64.8644 kg

DRUGS (5)
  1. BEXTRA [Suspect]
     Indication: ARTHRITIS
     Dosage: 20 MG (20 MG, 1 IN  D)
  2. ARICEPT [Concomitant]
  3. CALCIUM (CALCIUM) [Concomitant]
  4. VITAMINS (VITAMINS) [Concomitant]
  5. ZOCOR [Concomitant]

REACTIONS (9)
  - BLISTER [None]
  - DRUG INEFFECTIVE [None]
  - HERPES ZOSTER [None]
  - RASH [None]
  - RASH ERYTHEMATOUS [None]
  - RASH MACULO-PAPULAR [None]
  - RASH PRURITIC [None]
  - SCAR [None]
  - SECRETION DISCHARGE [None]
